FAERS Safety Report 6073135-8 (Version None)
Quarter: 2009Q1

REPORT INFORMATION
  Report Type: 
  Country: None (occurrence: None)
  Receive Date: 20090211
  Receipt Date: 20090203
  Transmission Date: 20090719
  Serious: Yes (Other)
  Sender: FDA-Public Use
  Company Number: US-WYE-H08076709

PATIENT
  Sex: Female

DRUGS (1)
  1. MYLOTARG [Suspect]
     Indication: ACUTE MYELOID LEUKAEMIA
     Dosage: NOT PROVIDED
     Route: 042

REACTIONS (1)
  - VENOOCCLUSIVE LIVER DISEASE [None]
